FAERS Safety Report 22135963 (Version 8)
Quarter: 2024Q4

REPORT INFORMATION
  Report Type: Report from Study
  Country: US (occurrence: US)
  Receive Date: 20230324
  Receipt Date: 20241101
  Transmission Date: 20250114
  Serious: Yes (Hospitalization, Other)
  Sender: VERTEX
  Company Number: US-VERTEX PHARMACEUTICALS-2022-014438

PATIENT
  Age: 22 Year
  Sex: Female

DRUGS (24)
  1. TRIKAFTA [Suspect]
     Active Substance: ELEXACAFTOR\IVACAFTOR\TEZACAFTOR
     Indication: Cystic fibrosis
     Dosage: 2 ORANGE TABS IN AM AND 1 BLUE TAB IN PM
     Route: 048
     Dates: start: 202003, end: 2024
  2. TRIKAFTA [Suspect]
     Active Substance: ELEXACAFTOR\IVACAFTOR\TEZACAFTOR
     Dosage: UNK
     Route: 048
     Dates: start: 20240123, end: 2024
  3. TRIKAFTA [Suspect]
     Active Substance: ELEXACAFTOR\IVACAFTOR\TEZACAFTOR
     Dosage: UNK
     Route: 048
     Dates: start: 20240926, end: 20241021
  4. TRAMADOL [Suspect]
     Active Substance: TRAMADOL
     Indication: Product used for unknown indication
     Route: 065
  5. MINERALS\VITAMINS [Concomitant]
     Active Substance: MINERALS\VITAMINS
  6. NASACORT AQ [Concomitant]
     Active Substance: TRIAMCINOLONE ACETONIDE
  7. SODIUM CHLORIDE [Concomitant]
     Active Substance: SODIUM CHLORIDE
  8. XOPENEX HFA [Concomitant]
     Active Substance: LEVALBUTEROL TARTRATE
  9. AZITHROMYCIN [Concomitant]
     Active Substance: AZITHROMYCIN
  10. VITAMIN D3 [Concomitant]
     Active Substance: CHOLECALCIFEROL
  11. OMEPRAZOLE [Concomitant]
     Active Substance: OMEPRAZOLE
  12. MIRALAX [Concomitant]
     Active Substance: POLYETHYLENE GLYCOL 3350
  13. URSODIOL [Concomitant]
     Active Substance: URSODIOL
  14. DEPAKOTE [Concomitant]
     Active Substance: DIVALPROEX SODIUM
  15. PULMOZYME [Concomitant]
     Active Substance: DORNASE ALFA
  16. KITABIS PAK [Concomitant]
     Active Substance: TOBRAMYCIN
  17. KEPPRA [Concomitant]
     Active Substance: LEVETIRACETAM
  18. NUVARING [Concomitant]
     Active Substance: ETHINYL ESTRADIOL\ETONOGESTREL
  19. RISPERIDONE [Concomitant]
     Active Substance: RISPERIDONE
  20. ZENPEP [Concomitant]
     Active Substance: PANCRELIPASE AMYLASE\PANCRELIPASE LIPASE\PANCRELIPASE PROTEASE
  21. GUANFACINE HYDROCHLORIDE [Concomitant]
     Active Substance: GUANFACINE HYDROCHLORIDE
  22. ADVAIR HFA [Concomitant]
     Active Substance: FLUTICASONE PROPIONATE\SALMETEROL XINAFOATE
  23. SERTRALINE HYDROCHLORIDE [Concomitant]
     Active Substance: SERTRALINE HYDROCHLORIDE
  24. OLANZAPINE [Concomitant]
     Active Substance: OLANZAPINE
     Route: 048

REACTIONS (6)
  - Suicide attempt [Unknown]
  - Self-injurious ideation [Recovered/Resolved]
  - Depression [Unknown]
  - Seizure [Recovered/Resolved]
  - Overdose [Recovered/Resolved]
  - Postural orthostatic tachycardia syndrome [Not Recovered/Not Resolved]

NARRATIVE: CASE EVENT DATE: 20220801
